FAERS Safety Report 15869724 (Version 2)
Quarter: 2019Q1

REPORT INFORMATION
  Report Type: Report from Study
  Country: DE (occurrence: DE)
  Receive Date: 20190125
  Receipt Date: 20190131
  Transmission Date: 20190417
  Serious: Yes (Other)
  Sender: FDA-Public Use
  Company Number: DE-ACTELION-A-US2019-185454

PATIENT
  Age: 66 Year
  Sex: Male

DRUGS (1)
  1. VENTAVIS [Suspect]
     Active Substance: ILOPROST
     Indication: PULMONARY ARTERIAL HYPERTENSION
     Dosage: 10 MCG, 6X^S/DAY
     Route: 055
     Dates: start: 20190111, end: 20190118

REACTIONS (5)
  - Coagulation test abnormal [Unknown]
  - Throat irritation [Not Recovered/Not Resolved]
  - Diarrhoea [Not Recovered/Not Resolved]
  - Nausea [Not Recovered/Not Resolved]
  - Larynx irritation [Not Recovered/Not Resolved]

NARRATIVE: CASE EVENT DATE: 20190111
